FAERS Safety Report 11140734 (Version 3)
Quarter: 2015Q3

REPORT INFORMATION
  Report Type: Spontaneous
  Country: JP (occurrence: JP)
  Receive Date: 20150527
  Receipt Date: 20150722
  Transmission Date: 20151125
  Serious: Yes (Other)
  Sender: FDA-Public Use
  Company Number: JP-TAKEDA-2014JNJ004367

PATIENT

DRUGS (1)
  1. VELCADE [Suspect]
     Active Substance: BORTEZOMIB
     Indication: PLASMA CELL MYELOMA
     Dosage: UNK
     Route: 050
     Dates: start: 201006

REACTIONS (4)
  - Dysphonia [Unknown]
  - Drug ineffective [Unknown]
  - Plasma cell myeloma [Unknown]
  - Hypoaesthesia [Unknown]
